FAERS Safety Report 12825878 (Version 8)
Quarter: 2017Q2

REPORT INFORMATION
  Report Type: Report from Study
  Country: BR (occurrence: BR)
  Receive Date: 20161007
  Receipt Date: 20170510
  Transmission Date: 20170830
  Serious: Yes (Death, Hospitalization, Other)
  Sender: FDA-Public Use
  Company Number: BR-JNJFOC-20160930914

PATIENT
  Age: 64 Year
  Sex: Male

DRUGS (11)
  1. BACTRIM [Concomitant]
     Active Substance: SULFAMETHOXAZOLE\TRIMETHOPRIM
     Route: 065
  2. HALOPERIDOL. [Concomitant]
     Active Substance: HALOPERIDOL
  3. IMBRUVICA [Suspect]
     Active Substance: IBRUTINIB
     Indication: MANTLE CELL LYMPHOMA
     Route: 048
     Dates: end: 20170405
  4. CITONEURIN [Concomitant]
     Active Substance: CYANOCOBALAMIN\PYRIDOXINE HYDROCHLORIDE\THIAMINE
  5. ACICLOVIR [Concomitant]
     Active Substance: ACYCLOVIR
     Route: 065
  6. OMEPRAZOLE. [Concomitant]
     Active Substance: OMEPRAZOLE
     Route: 065
  7. IMBRUVICA [Suspect]
     Active Substance: IBRUTINIB
     Indication: MANTLE CELL LYMPHOMA
     Route: 048
     Dates: start: 20160728, end: 20170413
  8. IMBRUVICA [Suspect]
     Active Substance: IBRUTINIB
     Indication: MANTLE CELL LYMPHOMA
     Route: 048
     Dates: start: 20160728
  9. ALLOPURINOL. [Concomitant]
     Active Substance: ALLOPURINOL
     Route: 065
  10. HALDOL [Concomitant]
     Active Substance: HALOPERIDOL
  11. LOSARTAN. [Concomitant]
     Active Substance: LOSARTAN
     Route: 065

REACTIONS (23)
  - Fall [Unknown]
  - Skin disorder [Unknown]
  - Mass [Recovered/Resolved]
  - Diarrhoea [Recovering/Resolving]
  - Somnolence [Unknown]
  - Lymphocyte count increased [Unknown]
  - Skin irritation [Unknown]
  - Joint dislocation [Unknown]
  - Fatigue [Unknown]
  - Decreased immune responsiveness [Not Recovered/Not Resolved]
  - Hypoaesthesia oral [Unknown]
  - Platelet count decreased [Unknown]
  - Drug ineffective [Not Recovered/Not Resolved]
  - Respiratory failure [Fatal]
  - Emotional distress [Unknown]
  - Blister infected [Unknown]
  - Abdominal pain upper [Recovering/Resolving]
  - Haemoglobin decreased [Not Recovered/Not Resolved]
  - Abasia [Unknown]
  - Syncope [Unknown]
  - Skin discolouration [Unknown]
  - Renal impairment [Unknown]
  - Blister [Recovered/Resolved]

NARRATIVE: CASE EVENT DATE: 201701
